FAERS Safety Report 5148098-X (Version None)
Quarter: 2006Q4

REPORT INFORMATION
  Report Type: 
  Country: None (occurrence: None)
  Receive Date: 20061110
  Receipt Date: 20060509
  Transmission Date: 20070319
  Serious: Yes (Death)
  Sender: FDA-Public Use
  Company Number: DE-ROCHE-447400

PATIENT
  Age: 43 Year
  Sex: Female
  Weight: 67 kg

DRUGS (8)
  1. XELODA [Suspect]
     Dosage: ON DAYS 1-14 OF 3 WEEK CYCLE.
     Route: 042
     Dates: start: 20060306, end: 20060424
  2. HERCEPTIN [Suspect]
     Route: 040
     Dates: end: 20060509
  3. HERCEPTIN [Suspect]
     Route: 040
     Dates: start: 20060306, end: 20060509
  4. NAVELBINE [Concomitant]
     Dosage: GIVEN ON DAYS 1 AND 8 OF 3 WEEK CYCLE.
     Route: 042
     Dates: start: 20060306, end: 20060509
  5. CHEMOTHERAPY [Concomitant]
     Dosage: TAC CHEMOTHERAPY, TAXOTERE, ADRAMYCIN AND CYCLOPHOSPHAMIDE.
     Dates: start: 20050515, end: 20050915
  6. ROXITHROMYCINE [Concomitant]
  7. ZOMETA [Concomitant]
     Dates: start: 20051015
  8. DEXAMETHASONE [Concomitant]
     Dates: start: 20060509

REACTIONS (9)
  - ANAPHYLACTIC REACTION [None]
  - ANXIETY [None]
  - CIRCULATORY COLLAPSE [None]
  - DYSPNOEA [None]
  - FEELING HOT [None]
  - PALMAR-PLANTAR ERYTHRODYSAESTHESIA SYNDROME [None]
  - PARAESTHESIA [None]
  - PULMONARY OEDEMA [None]
  - PYREXIA [None]
